FAERS Safety Report 5665014-2 (Version None)
Quarter: 2008Q1

REPORT INFORMATION
  Report Type: 
  Country: None (occurrence: None)
  Receive Date: 20080314
  Receipt Date: 20080302
  Transmission Date: 20080703
  Serious: Yes (Other)
  Sender: FDA-Public Use
  Company Number: US-PFIZER INC-2008020528

PATIENT
  Sex: Female
  Weight: 82 kg

DRUGS (1)
  1. CHANTIX [Suspect]
     Indication: SMOKING CESSATION THERAPY
     Route: 048
     Dates: start: 20080101, end: 20080302

REACTIONS (10)
  - BACK PAIN [None]
  - BODY TEMPERATURE INCREASED [None]
  - CHILLS [None]
  - EAR PAIN [None]
  - EYE PAIN [None]
  - NAUSEA [None]
  - RENAL DISORDER [None]
  - THROAT IRRITATION [None]
  - VOMITING [None]
  - WEIGHT INCREASED [None]
